FAERS Safety Report 11544503 (Version 1)
Quarter: 2015Q3

REPORT INFORMATION
  Report Type: Spontaneous
  Country: US (occurrence: US)
  Receive Date: 20150924
  Receipt Date: 20150924
  Transmission Date: 20151125
  Serious: Yes (Other)
  Sender: FDA-Public Use
  Company Number: US-SUN PHARMACEUTICAL INDUSTRIES LTD-13SUNOX05P

PATIENT
  Age: 63 Year
  Sex: Male

DRUGS (2)
  1. OXALIPLATIN. [Suspect]
     Active Substance: OXALIPLATIN
     Indication: OESOPHAGEAL ADENOCARCINOMA
     Dosage: 85 MG/M^2 ON DAYS 1, 15 AND 29
     Route: 065
     Dates: start: 200612, end: 200702
  2. CAPECITABINE. [Suspect]
     Active Substance: CAPECITABINE
     Indication: OESOPHAGEAL ADENOCARCINOMA
     Dosage: 1250 MG/M2 TWICE DAILY MONDAY TO FRIDAY ON DAYS OF RADIATION
     Route: 048
     Dates: start: 200612, end: 200703

REACTIONS (2)
  - Acute myeloid leukaemia [Unknown]
  - Mutagenic effect [Unknown]

NARRATIVE: CASE EVENT DATE: 200908
